FAERS Safety Report 15835733 (Version 3)
Quarter: 2019Q1

REPORT INFORMATION
  Report Type: Spontaneous
  Country: US (occurrence: US)
  Receive Date: 20190117
  Receipt Date: 20190327
  Transmission Date: 20190417
  Serious: Yes (Hospitalization, Other)
  Sender: FDA-Public Use
  Company Number: US-PHARMING-PHAUS2019000033

PATIENT

DRUGS (25)
  1. SODIUM CHLORIDE. [Concomitant]
     Active Substance: SODIUM CHLORIDE
  2. RUCONEST [Suspect]
     Active Substance: HUMAN C1-ESTERASE INHIBITOR
     Indication: HEREDITARY ANGIOEDEMA
     Dosage: 4200 IU, AS NEEDED
     Route: 042
     Dates: start: 20171102
  3. CALCIUM [Concomitant]
     Active Substance: CALCIUM
  4. MULTIVITAMINS [Concomitant]
     Active Substance: VITAMINS
  5. PRAVASTATIN. [Concomitant]
     Active Substance: PRAVASTATIN
  6. IBUPROFEN. [Concomitant]
     Active Substance: IBUPROFEN
  7. CALCIUM + VITAMIN D3 [Concomitant]
     Active Substance: CALCIUM CARBONATE\CHOLECALCIFEROL
  8. GABAPENTIN. [Concomitant]
     Active Substance: GABAPENTIN
  9. ZOLPIDEM [Concomitant]
     Active Substance: ZOLPIDEM\ZOLPIDEM TARTRATE
  10. RANITIDINE. [Concomitant]
     Active Substance: RANITIDINE
  11. BENADRYL [Concomitant]
     Active Substance: DIPHENHYDRAMINE HYDROCHLORIDE
  12. STERILE WATER [Concomitant]
     Active Substance: WATER
  13. EPINEPHRINE. [Concomitant]
     Active Substance: EPINEPHRINE
  14. SYNTHROID [Concomitant]
     Active Substance: LEVOTHYROXINE SODIUM
  15. LASIX [Concomitant]
     Active Substance: FUROSEMIDE
  16. TYLENOL [Concomitant]
     Active Substance: ACETAMINOPHEN
  17. METHOTREXATE. [Concomitant]
     Active Substance: METHOTREXATE
  18. BACLOFEN. [Concomitant]
     Active Substance: BACLOFEN
  19. METOPROLOL. [Concomitant]
     Active Substance: METOPROLOL
  20. POTASSIUM [Concomitant]
     Active Substance: POTASSIUM
  21. NAPROXEN. [Concomitant]
     Active Substance: NAPROXEN
  22. FOLIC ACID. [Concomitant]
     Active Substance: FOLIC ACID
  23. ASPIRIN. [Concomitant]
     Active Substance: ASPIRIN
  24. VITAMIN B12 [Concomitant]
     Active Substance: CYANOCOBALAMIN
  25. PERCOCET [Concomitant]
     Active Substance: ACETAMINOPHEN\OXYCODONE HYDROCHLORIDE

REACTIONS (3)
  - Drug effect incomplete [Unknown]
  - Tongue neoplasm malignant stage unspecified [Unknown]
  - Nausea [Unknown]

NARRATIVE: CASE EVENT DATE: 2019
